FAERS Safety Report 21967936 (Version 1)
Quarter: 2023Q1

REPORT INFORMATION
  Report Type: Spontaneous
  Country: US (occurrence: US)
  Receive Date: 20230208
  Receipt Date: 20230208
  Transmission Date: 20230418
  Serious: No
  Sender: FDA-Public Use
  Company Number: US-009507513-2302USA000271

PATIENT
  Age: 14 Year
  Sex: Female

DRUGS (5)
  1. NOXAFIL [Suspect]
     Active Substance: POSACONAZOLE
     Indication: Pulmonary trichosporonosis
     Dosage: UNK
     Route: 048
  2. SARGRAMOSTIM [Concomitant]
     Active Substance: SARGRAMOSTIM
     Indication: Pulmonary trichosporonosis
     Dosage: 250 MCG/M2/D; WHEN ABSOLUTE NEUTROPHIL COUNT (ANC) LESS THAN 500
  3. SARGRAMOSTIM [Concomitant]
     Active Substance: SARGRAMOSTIM
     Dosage: 100 MCG/M2, 3 TIMES WEEKLY; WHEN ABSOLUTE NEUTROPHIL COUNT (ANC) MORE THAN 500 CELLS/MICROLITRE
  4. MICAFUNGIN [Concomitant]
     Active Substance: MICAFUNGIN
     Indication: Prophylaxis
     Dosage: UNK
  5. ISAVUCONAZOLE [Concomitant]
     Active Substance: ISAVUCONAZOLE
     Indication: Pulmonary trichosporonosis
     Dosage: UNK

REACTIONS (1)
  - Product use in unapproved indication [Unknown]
